FAERS Safety Report 23678892 (Version 1)
Quarter: 2024Q1

REPORT INFORMATION
  Report Type: Spontaneous
  Country: US (occurrence: US)
  Receive Date: 20240327
  Receipt Date: 20240327
  Transmission Date: 20240410
  Serious: Yes (Other)
  Sender: FDA-Public Use
  Company Number: US-009507513-2403USA008128

PATIENT
  Sex: Male

DRUGS (1)
  1. KEYTRUDA [Suspect]
     Active Substance: PEMBROLIZUMAB
     Indication: Malignant melanoma

REACTIONS (4)
  - Immune thrombocytopenia [Recovered/Resolved]
  - Immune-mediated neurological disorder [Unknown]
  - Immune-mediated hepatic disorder [Unknown]
  - Incorrect dose administered [Unknown]
